FAERS Safety Report 25043460 (Version 1)
Quarter: 2025Q1

REPORT INFORMATION
  Report Type: Spontaneous
  Country: US (occurrence: US)
  Receive Date: 20250306
  Receipt Date: 20250306
  Transmission Date: 20250408
  Serious: No
  Sender: ROCHE
  Company Number: US-ROCHE-10000220864

PATIENT
  Sex: Female

DRUGS (22)
  1. ACTEMRA ACTPEN [Suspect]
     Active Substance: TOCILIZUMAB
     Indication: Rheumatoid arthritis
     Route: 058
  2. ASPIRIN CHE 81MG [Concomitant]
  3. ATORVASTATIN [Concomitant]
     Active Substance: ATORVASTATIN
  4. CLOPIDOGREL TAB 75MG [Concomitant]
  5. DEXAMETHASONE POW [Concomitant]
  6. FUROSEMIDE [Concomitant]
     Active Substance: FUROSEMIDE
  7. IRON TAB 325MG [Concomitant]
  8. LEVOTHYROXIN TAB 175 MCG [Concomitant]
  9. LISINOPRIL TAB 2.5MG [Concomitant]
  10. MULTIVITAMIN TAB [Concomitant]
  11. POLYETHYLENE LIQ [Concomitant]
  12. TRIAMCINOLON CRE 0.1% [Concomitant]
  13. TRIAMCINOLON CRE 0.1% [Concomitant]
  14. AMLODIPINE B TAB 5MG [Concomitant]
  15. GABAPENTIN [Concomitant]
     Active Substance: GABAPENTIN
  16. HYDROXYCHLOROQUINE [Concomitant]
     Active Substance: HYDROXYCHLOROQUINE
  17. METOPROLOL TB2 25 MG [Concomitant]
  18. NOVOLOG FLEX SOP 100 UNIT [Concomitant]
  19. ROSUVASTATIN [Concomitant]
     Active Substance: ROSUVASTATIN
  20. Lantus sol 100Unit/ml [Concomitant]
  21. Vitamin b12 TAB [Concomitant]
  22. LEVEMIR FLEX SOP 100 UNIT [Concomitant]

REACTIONS (1)
  - Dermatitis [Unknown]
